FAERS Safety Report 6809368-X (Version None)
Quarter: 2010Q2

REPORT INFORMATION
  Report Type: 
  Country: None (occurrence: None)
  Receive Date: 20100630
  Receipt Date: 20100615
  Transmission Date: 20101027
  Serious: Yes (Death)
  Sender: FDA-Public Use
  Company Number: GB-CUBIST-2010S1000113

PATIENT
  Age: 81 Year
  Sex: Female

DRUGS (4)
  1. CUBICIN [Suspect]
     Indication: SOFT TISSUE INFECTION
     Route: 042
     Dates: end: 20100221
  2. CUBICIN [Suspect]
     Indication: STAPHYLOCOCCAL BACTERAEMIA
     Route: 042
     Dates: end: 20100221
  3. VANCOMYCIN [Concomitant]
     Indication: DRUG USE FOR UNKNOWN INDICATION
     Dates: start: 20100221
  4. GENTAMICIN [Concomitant]
     Indication: DRUG USE FOR UNKNOWN INDICATION

REACTIONS (3)
  - ANTIMICROBIAL SUSCEPTIBILITY TEST RESISTANT [None]
  - RENAL FAILURE CHRONIC [None]
  - STAPHYLOCOCCAL SEPSIS [None]
